FAERS Safety Report 4577669-4 (Version None)
Quarter: 2005Q1

REPORT INFORMATION
  Report Type: 
  Country: None (occurrence: None)
  Receive Date: 20050210
  Receipt Date: 20050204
  Transmission Date: 20050727
  Serious: Yes (Hospitalization)
  Sender: FDA-Public Use
  Company Number: SE-MERCK-0502SWE00004

PATIENT
  Age: 45 Year
  Sex: Female

DRUGS (4)
  1. VIOXX [Suspect]
     Indication: SPONDYLITIS
     Route: 048
     Dates: start: 20020101, end: 20030101
  2. METOPROLOL TARTRATE [Concomitant]
     Route: 065
  3. LANSOPRAZOLE [Concomitant]
     Route: 065
  4. ZOPICLONE [Concomitant]
     Route: 065

REACTIONS (2)
  - ANGINA PECTORIS [None]
  - DEEP VEIN THROMBOSIS [None]
